FAERS Safety Report 20805613 (Version 1)
Quarter: 2022Q2

REPORT INFORMATION
  Report Type: Spontaneous
  Country: NL (occurrence: NL)
  Receive Date: 20220510
  Receipt Date: 20220510
  Transmission Date: 20220720
  Serious: Yes (Hospitalization)
  Sender: FDA-Public Use
  Company Number: NL-SUN PHARMACEUTICAL INDUSTRIES LTD-2022RR-336029

PATIENT
  Age: 74 Year
  Sex: Male
  Weight: 68 kg

DRUGS (10)
  1. GEMCITABINE [Suspect]
     Active Substance: GEMCITABINE
     Indication: Transitional cell carcinoma
     Dosage: 1 X PER DAY 1 PIECE
     Route: 065
     Dates: start: 20220321, end: 20220401
  2. CARBOPLATIN [Suspect]
     Active Substance: CARBOPLATIN
     Indication: Transitional cell carcinoma
     Dosage: 1 X PER DAY 1 PIECE
     Route: 065
     Dates: start: 20220321, end: 20220401
  3. MACROGOL POEDER V DRANK 10G / FORLAX POEDER VOOR DRANK SACHET 10GFO... [Concomitant]
     Indication: Product used for unknown indication
     Dosage: POWDER FOR DRINK, 10 G (GRAMS)
     Route: 065
  4. OXYCODON TABLET   5MG / Brand name not specifiedOXYCODON TABLET   5MG [Concomitant]
     Indication: Product used for unknown indication
     Dosage: IF NECESSARY
     Route: 065
  5. LISINOPRIL TABLET  5MG / Brand name not specifiedLISINOPRIL TABLET ... [Concomitant]
     Indication: Product used for unknown indication
     Dosage: TABLET, 5 MG (MILLIGRAM)
     Route: 065
  6. MIRABEGRON TABLET MGA 50MG / BETMIGA TABLET MVA 50MGBETMIGA TABLET ... [Concomitant]
     Indication: Product used for unknown indication
     Dosage: MODIFIED-RELEASE TABLET, 50 MG (MILLIGRAMS)
     Route: 065
  7. ATORVASTATINE TABLET 40MG / Brand name not specifiedATORVASTATINE T... [Concomitant]
     Indication: Product used for unknown indication
     Dosage: TABLET, 40 MG (MILLIGRAM)
     Route: 065
  8. METFORMINE TABLET MGA  500MG / GLUCIENT SR TABLET MVA 500MGGLUCIENT... [Concomitant]
     Indication: Product used for unknown indication
     Dosage: MODIFIED-RELEASE TABLET, 500 MG (MILLIGRAMS)
     Route: 065
  9. CLOPIDOGREL [Concomitant]
     Active Substance: CLOPIDOGREL BISULFATE
     Indication: Product used for unknown indication
     Dosage: TABLET, 75 MG (MILLIGRAM)
     Route: 065
  10. SOLIFENACINE TABLET 10MG / Brand name not specifiedSOLIFENACINE TAB... [Concomitant]
     Indication: Product used for unknown indication
     Dosage: TABLET, 10 MG (MILLIGRAM)
     Route: 065

REACTIONS (2)
  - Hypophagia [Recovering/Resolving]
  - Hiccups [Recovering/Resolving]

NARRATIVE: CASE EVENT DATE: 20220328
